FAERS Safety Report 14922937 (Version 3)
Quarter: 2018Q2

REPORT INFORMATION
  Report Type: Spontaneous
  Country: NL (occurrence: NL)
  Receive Date: 20180522
  Receipt Date: 20180604
  Transmission Date: 20180711
  Serious: Yes (Other)
  Sender: FDA-Public Use
  Company Number: NL-TEVA-2018-NL-894270

PATIENT
  Age: 16 Year
  Sex: Male
  Weight: 70 kg

DRUGS (5)
  1. ESCITALOPRAM TABLET 10MG TABLET, 10 MG (MILLIGRAM) [Suspect]
     Active Substance: ESCITALOPRAM OXALATE
     Indication: AFFECTIVE DISORDER
     Dosage: 40 MILLIGRAM DAILY;
     Route: 065
     Dates: start: 20171214
  2. MELATONINE [Concomitant]
     Active Substance: MELATONIN
     Dosage: 1 MILLIGRAM DAILY;
     Route: 065
  3. QUETIAPINE TABLET FO  25MG FILMOMHULDE TABLET, 25 MG (MILLIGRAM) [Suspect]
     Active Substance: QUETIAPINE FUMARATE
     Indication: AFFECTIVE DISORDER
     Dosage: 12.5 MILLIGRAM DAILY; FOR THE NIGHT HALF A TABLET
     Route: 065
     Dates: start: 20180126
  4. QUETIAPINE TABLET FO  25MG FILMOMHULDE TABLET, 25 MG (MILLIGRAM) [Suspect]
     Active Substance: QUETIAPINE FUMARATE
     Indication: RESTLESSNESS
  5. CHOLECALCIFEROL 800IE [Concomitant]
     Dosage: 800 IU (INTERNATIONAL UNIT) DAILY;
     Route: 065

REACTIONS (8)
  - Heart rate increased [Not Recovered/Not Resolved]
  - Abdominal pain [Not Recovered/Not Resolved]
  - Tachycardia [Not Recovered/Not Resolved]
  - Blood pressure increased [Not Recovered/Not Resolved]
  - Hypertension [Not Recovered/Not Resolved]
  - Diarrhoea haemorrhagic [Not Recovered/Not Resolved]
  - Diarrhoea [Not Recovered/Not Resolved]
  - Haematochezia [Not Recovered/Not Resolved]

NARRATIVE: CASE EVENT DATE: 20170207
